FAERS Safety Report 7234771-6 (Version None)
Quarter: 2010Q4

REPORT INFORMATION
  Report Type: 
  Country: None (occurrence: None)
  Receive Date: 20101130
  Receipt Date: 20100412
  Transmission Date: 20110411
  Serious: Yes (Hospitalization)
  Sender: FDA-Public Use
  Company Number: 2010SP021200

PATIENT
  Age: 35 Year
  Sex: Female
  Weight: 80.2867 kg

DRUGS (5)
  1. NUVARING [Suspect]
     Indication: CONTRACEPTION
     Dates: start: 20080801, end: 20090201
  2. TYLENOL-500 [Concomitant]
  3. LEVOXYL [Concomitant]
  4. AMOXIL [Concomitant]
  5. PRILOSEC [Concomitant]

REACTIONS (2)
  - FLATULENCE [None]
  - PULMONARY EMBOLISM [None]
